FAERS Safety Report 16333408 (Version 1)
Quarter: 2019Q2

REPORT INFORMATION
  Report Type: Spontaneous
  Country: US (occurrence: US)
  Receive Date: 20190520
  Receipt Date: 20190520
  Transmission Date: 20190711
  Serious: No
  Sender: FDA-Public Use
  Company Number: US-VANDA PHARMACEUTICALS, INC-2019ILOUS001733

PATIENT
  Age: 12 Year
  Sex: Male

DRUGS (3)
  1. STRATTERA [Concomitant]
     Active Substance: ATOMOXETINE HYDROCHLORIDE
     Indication: PRODUCT USED FOR UNKNOWN INDICATION
  2. FANAPT [Suspect]
     Active Substance: ILOPERIDONE
     Dosage: 1 UNK, UNK
     Dates: start: 20190109
  3. FANAPT [Suspect]
     Active Substance: ILOPERIDONE
     Indication: ATTENTION DEFICIT/HYPERACTIVITY DISORDER
     Dosage: 2 MG, QHS
     Route: 048
     Dates: end: 20190109

REACTIONS (4)
  - Product use in unapproved indication [Unknown]
  - Electrocardiogram T wave inversion [Unknown]
  - Product administered to patient of inappropriate age [Unknown]
  - Bundle branch block [Unknown]

NARRATIVE: CASE EVENT DATE: 20190109
